FAERS Safety Report 6329986-5 (Version None)
Quarter: 2009Q3

REPORT INFORMATION
  Report Type: 
  Country: None (occurrence: None)
  Receive Date: 20090825
  Receipt Date: 20090821
  Transmission Date: 20100115
  Serious: Yes (Disabling)
  Sender: FDA-Public Use
  Company Number: GXKR2009DE09431

PATIENT
  Age: 43 Year
  Sex: Female
  Weight: 60 kg

DRUGS (4)
  1. HALOPERIDOL           (HALOPERIDOL) [Suspect]
     Dosage: MAX. 15 MG, ORAL
     Route: 048
     Dates: start: 20090503, end: 20090522
  2. ZYPREXA [Suspect]
     Indication: DELUSIONAL DISORDER, PERSECUTORY TYPE
     Dosage: 10 MG, ORAL
     Route: 048
     Dates: start: 20090512, end: 20090716
  3. QUETIAPINE FUMARATE [Concomitant]
  4. ZOPICLONE (ZOPICLONE) [Concomitant]

REACTIONS (1)
  - PULMONARY EMBOLISM [None]
